FAERS Safety Report 23734452 (Version 1)
Quarter: 2024Q2

REPORT INFORMATION
  Report Type: Other
  Country: US (occurrence: None)
  Receive Date: 20240412
  Receipt Date: 20240412
  Transmission Date: 20240716
  Serious: Yes (Death)
  Sender: FDA-Public Use
  Company Number: US-ROCHE-3544668

PATIENT
  Age: 51 Year
  Sex: Female

DRUGS (6)
  1. MYCOPHENOLATE MOFETIL [Suspect]
     Active Substance: MYCOPHENOLATE MOFETIL
     Indication: Prophylaxis against transplant rejection
     Route: 065
  2. BASILIXIMAB [Concomitant]
     Active Substance: BASILIXIMAB
  3. TACROLIMUS [Concomitant]
     Active Substance: TACROLIMUS
  4. GEMCITABINE HYDROCHLORIDE\OXALIPLATIN [Concomitant]
     Active Substance: GEMCITABINE HYDROCHLORIDE\OXALIPLATIN
     Dates: start: 20211201, end: 20220701
  5. GEMCITABINE [Concomitant]
     Active Substance: GEMCITABINE
     Dates: start: 20221001, end: 20221201
  6. ABRAXANE [Concomitant]
     Active Substance: PACLITAXEL
     Dates: start: 20221001, end: 20221201

REACTIONS (1)
  - Cholangiocarcinoma [Fatal]
